FAERS Safety Report 8760859 (Version 2)
Quarter: 2012Q4

REPORT INFORMATION
  Report Type: 
  Country: GR (occurrence: GR)
  Receive Date: 20120830
  Receipt Date: 20121005
  Transmission Date: 20130627
  Serious: Yes (Other)
  Sender: FDA-Public Use
  Company Number: GR-GENZYME-CERZ-1002609

PATIENT
  Age: 22 Year
  Sex: Female

DRUGS (2)
  1. CEREZYME [Suspect]
     Indication: GAUCHER^S DISEASE
     Dosage: 15 U/kg, q2w
     Route: 042
     Dates: start: 20120717
  2. CEREZYME [Suspect]
     Dosage: UNK
     Route: 042
     Dates: start: 200804

REACTIONS (3)
  - Periorbital oedema [Recovered/Resolved]
  - Erythema [Recovered/Resolved]
  - Hypertension [Unknown]
